FAERS Safety Report 7796888-7 (Version None)
Quarter: 2011Q4

REPORT INFORMATION
  Report Type: 
  Country: None (occurrence: None)
  Receive Date: 20111003
  Receipt Date: 20110914
  Transmission Date: 20120403
  Serious: Yes (Hospitalization)
  Sender: FDA-Public Use
  Company Number: US-ACCORD-008500

PATIENT
  Age: 16 Year
  Sex: Male

DRUGS (6)
  1. ONDANSETRON [Concomitant]
  2. PROMETHAZINE [Concomitant]
  3. DEXAMETHASONE [Suspect]
     Indication: NAUSEA
     Dosage: 6.00-MG-1.0DAYS;
  4. CISPLATIN [Suspect]
     Indication: TESTICULAR GERM CELL CANCER
     Dosage: 20.00-MG/M2-
  5. ETOPOSIDE [Suspect]
     Indication: TESTICULAR GERM CELL CANCER
     Dosage: 100.00-MG/M2-
  6. BLEOMYCIN SULFATE [Suspect]
     Indication: TESTICULAR GERM CELL CANCER
     Dosage: 30.00-MG-

REACTIONS (5)
  - MENTAL STATUS CHANGES [None]
  - PSYCHOTIC DISORDER [None]
  - HEPATIC ENZYME INCREASED [None]
  - NEUTROPENIA [None]
  - NAUSEA [None]
